FAERS Safety Report 15065373 (Version 1)
Quarter: 2018Q2

REPORT INFORMATION
  Report Type: Spontaneous
  Country: FI (occurrence: FI)
  Receive Date: 20180626
  Receipt Date: 20180626
  Transmission Date: 20180711
  Serious: Yes (Disabling, Congenital Anomaly)
  Sender: FDA-Public Use
  Company Number: FI-ASTRAZENECA-2018SE80601

PATIENT
  Sex: Male

DRUGS (13)
  1. OXAMIN [Concomitant]
     Active Substance: OXAZEPAM
     Route: 064
     Dates: start: 20170824
  2. OPAMOX [Concomitant]
     Active Substance: OXAZEPAM
     Dosage: 15MG TABL., 1 TABLET 3 TIMES A DAY
     Route: 064
     Dates: start: 20171020
  3. OBSIDAN [Concomitant]
  4. PANADOL FORTE [Concomitant]
  5. KETIPINOR [Concomitant]
     Active Substance: QUETIAPINE FUMARATE
     Dosage: 50MG+50MG+200MG EVERY DAY
     Route: 064
     Dates: start: 20170922
  6. EMGESAN [Concomitant]
     Active Substance: MAGNESIUM HYDROXIDE
     Route: 064
     Dates: start: 20170824
  7. SEROQUEL XR [Interacting]
     Active Substance: QUETIAPINE FUMARATE
     Route: 064
     Dates: start: 20171020
  8. KETIPINOR [Concomitant]
     Active Substance: QUETIAPINE FUMARATE
     Route: 064
     Dates: start: 20170824
  9. TENOX [Concomitant]
     Route: 064
     Dates: start: 20170505
  10. KETIPINOR [Concomitant]
     Active Substance: QUETIAPINE FUMARATE
     Dosage: 100MG+ 100MG +200MG EVERY DAY
     Route: 064
     Dates: start: 20171020
  11. OPAMOX [Concomitant]
     Active Substance: OXAZEPAM
     Dosage: 15-30MG (MAX 30MG/DAY)
     Route: 064
     Dates: start: 20170922
  12. LORAZEPAM. [Concomitant]
     Active Substance: LORAZEPAM
  13. SEROQUEL XR [Suspect]
     Active Substance: QUETIAPINE FUMARATE
     Route: 064
     Dates: start: 20170922

REACTIONS (8)
  - Exposure during pregnancy [Unknown]
  - Heart disease congenital [Unknown]
  - Premature baby [Unknown]
  - Heterotaxia [Unknown]
  - Poor sucking reflex [Unknown]
  - Drug interaction [Unknown]
  - Polydactyly [Unknown]
  - Congenital renal disorder [Unknown]
